FAERS Safety Report 17019951 (Version 2)
Quarter: 2019Q4

REPORT INFORMATION
  Report Type: Spontaneous
  Country: CA (occurrence: CA)
  Receive Date: 20191112
  Receipt Date: 20191231
  Transmission Date: 20200122
  Serious: Yes (Other)
  Sender: FDA-Public Use
  Company Number: CA-ASTRAZENECA-2019SF42760

PATIENT
  Age: 60 Year
  Sex: Female
  Weight: 64 kg

DRUGS (29)
  1. M-ESLON [Suspect]
     Active Substance: MORPHINE SULFATE
     Route: 065
  2. CYMBALTA [Concomitant]
     Active Substance: DULOXETINE HYDROCHLORIDE
  3. DOCUSATE [Concomitant]
     Active Substance: DOCUSATE
  4. RITUXIMAB GP2013 [Suspect]
     Active Substance: RITUXIMAB
     Indication: RHEUMATOID ARTHRITIS
     Route: 065
  5. ARAVA [Concomitant]
     Active Substance: LEFLUNOMIDE
  6. SYNTHROID [Concomitant]
     Active Substance: LEVOTHYROXINE SODIUM
  7. VENTOLIN [Concomitant]
     Active Substance: ALBUTEROL SULFATE
  8. ACETAMINOPHEN. [Concomitant]
     Active Substance: ACETAMINOPHEN
  9. LOSEC [Suspect]
     Active Substance: OMEPRAZOLE
     Route: 048
  10. METHOTREXATE. [Suspect]
     Active Substance: METHOTREXATE
     Route: 065
  11. STATEX [MORPHINE SULFATE] [Suspect]
     Active Substance: MORPHINE SULFATE
     Dosage: GENERIC- INJECTION USP SINGLEUSE,PRESERVATIVE FREE
     Route: 065
  12. BETAXOLOL. [Concomitant]
     Active Substance: BETAXOLOL
  13. ELAVIL [Concomitant]
     Active Substance: AMITRIPTYLINE HYDROCHLORIDE
  14. COUMADIN [Concomitant]
     Active Substance: WARFARIN SODIUM
  15. DIPHENHYDRAMINE. [Concomitant]
     Active Substance: DIPHENHYDRAMINE
  16. SENOKOT [Concomitant]
     Active Substance: SENNOSIDES
  17. XALATAN [Concomitant]
     Active Substance: LATANOPROST
     Route: 047
  18. MORPHINE [Suspect]
     Active Substance: MORPHINE
     Route: 065
  19. MORPHINE [Suspect]
     Active Substance: MORPHINE
     Dosage: MORPHINE SULFATE INJECTION USP SINGLEUSE
     Route: 042
  20. PANTOPRAZOLE [Suspect]
     Active Substance: PANTOPRAZOLE
     Route: 065
  21. RITUXIMAB GP2013 [Suspect]
     Active Substance: RITUXIMAB
     Indication: RHEUMATOID ARTHRITIS
     Route: 042
  22. STATEX [MORPHINE SULFATE] [Suspect]
     Active Substance: MORPHINE SULFATE
     Route: 065
  23. AZOPT [Concomitant]
     Active Substance: BRINZOLAMIDE
     Route: 047
  24. NEXIUM [Suspect]
     Active Substance: ESOMEPRAZOLE MAGNESIUM
     Route: 048
  25. ACTEMRA [Suspect]
     Active Substance: TOCILIZUMAB
     Indication: RHEUMATOID ARTHRITIS
     Route: 042
  26. ACTEMRA [Suspect]
     Active Substance: TOCILIZUMAB
     Indication: RHEUMATOID ARTHRITIS
     Route: 065
  27. CYCLOBENZAPRINE. [Suspect]
     Active Substance: CYCLOBENZAPRINE
     Route: 065
  28. EPINEPHRINE. [Concomitant]
     Active Substance: EPINEPHRINE
  29. OXYNEO [Concomitant]
     Active Substance: OXYCODONE
     Route: 065

REACTIONS (8)
  - Hyperaesthesia [Not Recovered/Not Resolved]
  - Diarrhoea [Not Recovered/Not Resolved]
  - Fungal infection [Not Recovered/Not Resolved]
  - Swelling [Not Recovered/Not Resolved]
  - Pain [Not Recovered/Not Resolved]
  - Haemoglobin decreased [Not Recovered/Not Resolved]
  - Nasopharyngitis [Not Recovered/Not Resolved]
  - Muscular weakness [Not Recovered/Not Resolved]
